FAERS Safety Report 12320739 (Version 3)
Quarter: 2016Q3

REPORT INFORMATION
  Report Type: Report from Study
  Country: CA (occurrence: CA)
  Receive Date: 20160429
  Receipt Date: 20160912
  Transmission Date: 20161109
  Serious: Yes (Death)
  Sender: FDA-Public Use
  Company Number: CA-HLSUS-2016-CA-000065

PATIENT
  Age: 65 Year
  Sex: Female
  Weight: 50 kg

DRUGS (5)
  1. ATROPINE 1% [Concomitant]
     Active Substance: ATROPINE
     Indication: SCHIZOAFFECTIVE DISORDER BIPOLAR TYPE
     Dosage: 1-2 DROPS BID
     Route: 060
  2. CLOZARIL [Suspect]
     Active Substance: CLOZAPINE
     Indication: SCHIZOAFFECTIVE DISORDER BIPOLAR TYPE
     Dosage: 100 MG DAILY
     Route: 048
     Dates: start: 20010322, end: 20160424
  3. RISPERDAL [Concomitant]
     Active Substance: RISPERIDONE
     Indication: SCHIZOAFFECTIVE DISORDER BIPOLAR TYPE
     Dosage: 1 MG AT SUPPER AND 2 MG HS
     Route: 048
  4. KEMADRIN [Concomitant]
     Active Substance: PROCYCLIDINE HYDROCHLORIDE
     Indication: SCHIZOAFFECTIVE DISORDER BIPOLAR TYPE
     Dosage: 5 MG BID
     Route: 048
  5. EPIVAL [Concomitant]
     Active Substance: DIVALPROEX SODIUM
     Indication: SCHIZOAFFECTIVE DISORDER BIPOLAR TYPE
     Dosage: 500 MG BID AND 750 MG HS
     Route: 048

REACTIONS (6)
  - Blood creatinine increased [Unknown]
  - Asthenia [None]
  - Choking [Fatal]
  - Dysphagia [Unknown]
  - Impaired self-care [None]
  - Haemoglobin decreased [Unknown]

NARRATIVE: CASE EVENT DATE: 201603
